FAERS Safety Report 9199132 (Version 2)
Quarter: 2013Q2

REPORT INFORMATION
  Report Type: Spontaneous
  Country: US (occurrence: US)
  Receive Date: 20130329
  Receipt Date: 20130509
  Transmission Date: 20140414
  Serious: No
  Sender: FDA-Public Use
  Company Number: US-PFIZER INC-2013102153

PATIENT
  Age: 57 Year
  Sex: Female
  Weight: 65.76 kg

DRUGS (3)
  1. LYRICA [Suspect]
     Indication: NEURALGIA
     Dosage: 150 MG, 2X/DAY
     Route: 048
     Dates: start: 2011
  2. XANAX [Concomitant]
     Dosage: 0.5 MG, AS NEEDED
  3. PRILOSEC [Concomitant]
     Indication: GASTROOESOPHAGEAL REFLUX DISEASE
     Dosage: 20 MG, 2X/DAY

REACTIONS (4)
  - Vision blurred [Unknown]
  - Musculoskeletal chest pain [Unknown]
  - Lung disorder [Unknown]
  - Cough [Unknown]
